FAERS Safety Report 23630383 (Version 2)
Quarter: 2024Q2

REPORT INFORMATION
  Report Type: Spontaneous
  Country: US (occurrence: US)
  Receive Date: 20240314
  Receipt Date: 20240604
  Transmission Date: 20240716
  Serious: No
  Sender: FDA-Public Use
  Company Number: US-BRISTOL-MYERS SQUIBB COMPANY-2024-041171

PATIENT
  Age: 73 Year
  Sex: Female

DRUGS (1)
  1. ZEPOSIA [Suspect]
     Active Substance: OZANIMOD HYDROCHLORIDE
     Indication: Proctitis ulcerative
     Route: 048

REACTIONS (3)
  - Heart rate irregular [Unknown]
  - Bacterial vaginosis [Unknown]
  - Upper respiratory tract infection [Unknown]
